FAERS Safety Report 4527536-7 (Version None)
Quarter: 2004Q4

REPORT INFORMATION
  Report Type: 
  Country: None (occurrence: None)
  Receive Date: 20041123
  Receipt Date: 20040628
  Transmission Date: 20050328
  Serious: Yes (Other)
  Sender: FDA-Public Use
  Company Number: 2004043649

PATIENT
  Age: 73 Year
  Sex: Male

DRUGS (2)
  1. LIPITOR [Suspect]
     Indication: BLOOD CHOLESTEROL
     Dosage: 10 MG (10 MG) ORAL
     Route: 048
     Dates: start: 20030101, end: 20040101
  2. METOPROLOL TARTRATE [Concomitant]

REACTIONS (1)
  - DEAFNESS [None]
